FAERS Safety Report 21884186 (Version 3)
Quarter: 2024Q4

REPORT INFORMATION
  Report Type: Spontaneous
  Country: US (occurrence: US)
  Receive Date: 20230119
  Receipt Date: 20241127
  Transmission Date: 20250114
  Serious: No
  Sender: GLAXOSMITHKLINE
  Company Number: US-GSKCCFUS-Case-01602275_AE-90535

PATIENT
  Age: 53 Year
  Sex: Female

DRUGS (2)
  1. BENLYSTA [Suspect]
     Active Substance: BELIMUMAB
     Indication: Systemic lupus erythematosus
     Dosage: 1 PUFF(S), WE
     Dates: start: 20230109
  2. FOLIC ACID [Concomitant]
     Active Substance: FOLIC ACID
     Indication: Systemic lupus erythematosus
     Dosage: UNK

REACTIONS (11)
  - Headache [Not Recovered/Not Resolved]
  - Night sweats [Not Recovered/Not Resolved]
  - Injection site pain [Recovered/Resolved]
  - Pruritus [Recovering/Resolving]
  - Muscle tightness [Unknown]
  - Joint stiffness [Unknown]
  - Urticaria [Unknown]
  - Cough [Unknown]
  - Retching [Unknown]
  - Skin discolouration [Unknown]
  - Insomnia [Unknown]

NARRATIVE: CASE EVENT DATE: 20230109
